FAERS Safety Report 17500557 (Version 1)
Quarter: 2020Q1

REPORT INFORMATION
  Report Type: Spontaneous
  Country: FR (occurrence: FR)
  Receive Date: 20200305
  Receipt Date: 20200305
  Transmission Date: 20200409
  Serious: Yes (Life-Threatening)
  Sender: FDA-Public Use
  Company Number: FR-ACCORD-174802

PATIENT
  Age: 40 Year
  Sex: Female
  Weight: 56.5 kg

DRUGS (9)
  1. ALPRAZOLAM. [Suspect]
     Active Substance: ALPRAZOLAM
     Route: 048
     Dates: start: 20200120, end: 20200120
  2. NAPROXEN. [Suspect]
     Active Substance: NAPROXEN
     Route: 048
     Dates: start: 20200120, end: 20200120
  3. DOXYLAMINE [Suspect]
     Active Substance: DOXYLAMINE
     Route: 048
     Dates: start: 20200120, end: 20200120
  4. EBASTINE [Suspect]
     Active Substance: EBASTINE
     Route: 048
     Dates: start: 20200120, end: 20200120
  5. PARACETAMOL [Suspect]
     Active Substance: ACETAMINOPHEN
     Route: 048
     Dates: start: 20200120, end: 20200120
  6. CODEINE [Suspect]
     Active Substance: CODEINE
     Route: 048
     Dates: start: 20200120, end: 20200120
  7. ESCITALOPRAM [Suspect]
     Active Substance: ESCITALOPRAM OXALATE
     Route: 048
     Dates: start: 20200120, end: 20200120
  8. OXAZEPAM. [Suspect]
     Active Substance: OXAZEPAM
     Route: 048
     Dates: start: 20200120, end: 20200120
  9. TRAMADOL. [Suspect]
     Active Substance: TRAMADOL
     Route: 048
     Dates: start: 20200120, end: 20200120

REACTIONS (4)
  - Mixed liver injury [Recovering/Resolving]
  - Hepatic failure [Recovering/Resolving]
  - Toxicity to various agents [Unknown]
  - Coma [Recovered/Resolved]

NARRATIVE: CASE EVENT DATE: 20200120
